FAERS Safety Report 16863414 (Version 1)
Quarter: 2019Q3

REPORT INFORMATION
  Report Type: Spontaneous
  Country: US (occurrence: US)
  Receive Date: 20190927
  Receipt Date: 20190927
  Transmission Date: 20191005
  Serious: No
  Sender: FDA-Public Use
  Company Number: US-SA-2019SA268645

PATIENT
  Age: 69 Year
  Sex: Female

DRUGS (1)
  1. PRALUENT [Suspect]
     Active Substance: ALIROCUMAB
     Dosage: UNK
     Dates: start: 20190911

REACTIONS (6)
  - Arthralgia [Unknown]
  - Bronchitis [Unknown]
  - Influenza like illness [Unknown]
  - Oropharyngeal discomfort [Unknown]
  - Nasopharyngitis [Unknown]
  - Asthenia [Unknown]

NARRATIVE: CASE EVENT DATE: 201909
